FAERS Safety Report 24548661 (Version 1)
Quarter: 2024Q4

REPORT INFORMATION
  Report Type: Spontaneous
  Country: US (occurrence: None)
  Receive Date: 20241023
  Receipt Date: 20241023
  Transmission Date: 20250114
  Serious: Yes (unspecified)
  Sender: Public
  Company Number: None

PATIENT
  Age: 68 Year
  Sex: Male
  Weight: 41 kg

DRUGS (1)
  1. INSULIN GLARGINE-YFGN [Suspect]
     Active Substance: INSULIN GLARGINE-YFGN
     Indication: Diabetes mellitus
     Dosage: OTHER FREQUENCY : ONCE;?
     Route: 058
     Dates: start: 20240720, end: 20240721

REACTIONS (4)
  - Hypoglycaemia [None]
  - Dialysis [None]
  - Blood glucose increased [None]
  - Therapy interrupted [None]

NARRATIVE: CASE EVENT DATE: 20240721
